FAERS Safety Report 13379423 (Version 1)
Quarter: 2017Q1

REPORT INFORMATION
  Report Type: Spontaneous
  Country: US (occurrence: US)
  Receive Date: 20170328
  Receipt Date: 20170328
  Transmission Date: 20170429
  Serious: No
  Sender: FDA-Public Use
  Company Number: US-ROCHE-1091641

PATIENT
  Age: 53 Year
  Sex: Female

DRUGS (2)
  1. XOLAIR [Suspect]
     Active Substance: OMALIZUMAB
     Indication: COUGH
  2. XOLAIR [Suspect]
     Active Substance: OMALIZUMAB
     Indication: ASTHMA
     Route: 058
     Dates: start: 20110311

REACTIONS (4)
  - Dyspnoea [Unknown]
  - Adverse drug reaction [Unknown]
  - Sinusitis [Unknown]
  - Tic [Unknown]

NARRATIVE: CASE EVENT DATE: 20110804
